FAERS Safety Report 23651702 (Version 2)
Quarter: 2024Q2

REPORT INFORMATION
  Report Type: Spontaneous
  Country: US (occurrence: US)
  Receive Date: 20240320
  Receipt Date: 20240416
  Transmission Date: 20240716
  Serious: No
  Sender: FDA-Public Use
  Company Number: US-SA-SAC20240318001145

PATIENT
  Age: 51 Year
  Sex: Male

DRUGS (19)
  1. DUPIXENT [Suspect]
     Active Substance: DUPILUMAB
     Indication: Asthma
     Dosage: 300 MG, QOW
     Route: 058
     Dates: start: 20231002
  2. EPIPEN [Concomitant]
     Active Substance: EPINEPHRINE
     Indication: Hypersensitivity
     Dosage: 0.3 ML, PRN
     Route: 030
     Dates: start: 20240321
  3. QVAR REDIHALER [Concomitant]
     Active Substance: BECLOMETHASONE DIPROPIONATE
     Indication: Asthma
     Dosage: 2 DF, BID
     Route: 055
     Dates: start: 20240321
  4. NORCO [Concomitant]
     Active Substance: ACETAMINOPHEN\HYDROCODONE BITARTRATE
     Indication: Pain
     Dosage: 1 DF, Q4H
     Route: 048
     Dates: start: 20240311
  5. ROBAXIN [Concomitant]
     Active Substance: METHOCARBAMOL
     Dosage: 1 DF, BID
     Route: 048
     Dates: start: 20240209
  6. PROVENTIL HFA [Concomitant]
     Active Substance: ALBUTEROL SULFATE
     Indication: Dyspnoea
     Dosage: 2 DF, Q6H
     Route: 055
     Dates: start: 20240110
  7. DYAZIDE [Concomitant]
     Active Substance: HYDROCHLOROTHIAZIDE\TRIAMTERENE
     Dosage: 1 DF, QD
     Route: 048
     Dates: start: 20240122
  8. LIPITOR [Concomitant]
     Active Substance: ATORVASTATIN CALCIUM
     Dosage: 1 DF, QD
     Route: 048
     Dates: start: 20240122
  9. CARDIZEM CD [Concomitant]
     Active Substance: DILTIAZEM HYDROCHLORIDE
     Dosage: 1 DF, QD
     Route: 048
     Dates: start: 20231120
  10. MOBIC [Concomitant]
     Active Substance: MELOXICAM
     Dosage: 1 DF, QD
     Route: 048
     Dates: start: 20231120
  11. WELLBUTRIN [Concomitant]
     Active Substance: BUPROPION HYDROCHLORIDE
     Dosage: 1 DF, Q12H
     Route: 048
     Dates: start: 20231120
  12. SINGULAIR [Concomitant]
     Active Substance: MONTELUKAST SODIUM
     Dosage: 1 DF, QD
     Route: 048
     Dates: start: 20231106
  13. DEPOTEST [Concomitant]
     Dosage: 2 ML, QOW
     Route: 030
     Dates: start: 20231012
  14. TRELEGY ELLIPTA [Concomitant]
     Active Substance: FLUTICASONE FUROATE\UMECLIDINIUM BROMIDE\VILANTEROL TRIFENATATE
     Indication: Asthma
     Dosage: 1 DF, QD
     Route: 055
     Dates: start: 20230912
  15. LEXAPRO [Concomitant]
     Active Substance: ESCITALOPRAM OXALATE
     Dosage: 1 DF, QD
     Route: 048
     Dates: start: 20230501
  16. DYMISTA [Concomitant]
     Active Substance: AZELASTINE HYDROCHLORIDE\FLUTICASONE PROPIONATE
     Dosage: 1 DF, BID
     Route: 045
     Dates: start: 20230501
  17. NARCAN [Concomitant]
     Active Substance: NALOXONE HYDROCHLORIDE
     Dosage: 4 MG, QD
     Route: 045
     Dates: start: 20230217
  18. LOTRISONE [Concomitant]
     Active Substance: BETAMETHASONE DIPROPIONATE\CLOTRIMAZOLE
     Dosage: 1 DF, BID
     Route: 061
     Dates: start: 20230729
  19. PHENTERMINE [Concomitant]
     Active Substance: PHENTERMINE
     Dosage: 1 DF, QD
     Route: 048
     Dates: start: 20240322

REACTIONS (8)
  - COVID-19 [Unknown]
  - Dyspnoea [Unknown]
  - Cough [Unknown]
  - Urticaria [Unknown]
  - Swelling face [Unknown]
  - Nausea [Recovered/Resolved]
  - Abdominal pain [Recovered/Resolved]
  - Diarrhoea [Recovered/Resolved]

NARRATIVE: CASE EVENT DATE: 20231006
